FAERS Safety Report 12084225 (Version 1)
Quarter: 2016Q1

REPORT INFORMATION
  Report Type: Spontaneous
  Country: US (occurrence: None)
  Receive Date: 20160216
  Receipt Date: 20160216
  Transmission Date: 20160526
  Serious: Yes (Life-Threatening)
  Sender: FDA-Public Use
  Company Number: None

PATIENT
  Age: 65 Year
  Sex: Male

DRUGS (1)
  1. WARFARIN [Suspect]
     Active Substance: WARFARIN
     Indication: ATRIAL FIBRILLATION
     Route: 048
     Dates: start: 20151023, end: 20151031

REACTIONS (10)
  - International normalised ratio increased [None]
  - Dyspnoea [None]
  - Hypoxia [None]
  - Aspiration [None]
  - Anticoagulation drug level below therapeutic [None]
  - Tonsillar haemorrhage [None]
  - Peritonsillar abscess [None]
  - Pneumonia [None]
  - Pneumonitis [None]
  - Drug interaction [None]

NARRATIVE: CASE EVENT DATE: 20151031
